FAERS Safety Report 6490086-5 (Version None)
Quarter: 2009Q4

REPORT INFORMATION
  Report Type: 
  Country: None (occurrence: None)
  Receive Date: 20091211
  Receipt Date: 20090121
  Transmission Date: 20100525
  Serious: No
  Sender: FDA-Public Use
  Company Number: A0765344A

PATIENT
  Age: 70 Year
  Sex: Female
  Weight: 63 kg

DRUGS (3)
  1. FLOVENT [Suspect]
     Indication: DRUG USE FOR UNKNOWN INDICATION
     Route: 055
  2. CICLESONIDE [Suspect]
     Indication: ASTHMA
     Dosage: 160U TWICE PER DAY
  3. SINGULAIR [Concomitant]

REACTIONS (3)
  - BLOOD PRESSURE INCREASED [None]
  - FEELING ABNORMAL [None]
  - ORAL CANDIDIASIS [None]
